FAERS Safety Report 25105252 (Version 1)
Quarter: 2025Q1

REPORT INFORMATION
  Report Type: Spontaneous
  Country: US (occurrence: None)
  Receive Date: 20250320
  Receipt Date: 20250320
  Transmission Date: 20250409
  Serious: No
  Sender: FDA-CTU
  Company Number: None

PATIENT
  Age: 72 Year
  Sex: Male

DRUGS (2)
  1. APIXABAN [Suspect]
     Active Substance: APIXABAN
     Indication: Atrial fibrillation
  2. CLOPIDOGREL BISULFATE [Suspect]
     Active Substance: CLOPIDOGREL BISULFATE

REACTIONS (4)
  - Gastrointestinal ulcer haemorrhage [None]
  - Gastrointestinal anastomotic haemorrhage [None]
  - Iron deficiency anaemia [None]
  - Gastrointestinal polyp [None]

NARRATIVE: CASE EVENT DATE: 20250122
